FAERS Safety Report 19577377 (Version 1)
Quarter: 2021Q3

REPORT INFORMATION
  Report Type: Spontaneous
  Country: CA (occurrence: CA)
  Receive Date: 20210719
  Receipt Date: 20210719
  Transmission Date: 20211014
  Serious: Yes (Other)
  Sender: FDA-Public Use
  Company Number: CA-JNJFOC-20210731535

PATIENT
  Age: 28 Year
  Sex: Male
  Weight: 75 kg

DRUGS (2)
  1. INFLIXIMAB, RECOMBINANT [Suspect]
     Active Substance: INFLIXIMAB
     Indication: ANKYLOSING SPONDYLITIS
     Route: 042
  2. CELEBREX [Concomitant]
     Active Substance: CELECOXIB
     Indication: PRODUCT USED FOR UNKNOWN INDICATION

REACTIONS (6)
  - Burns second degree [Unknown]
  - Skin injury [Unknown]
  - Wound [Unknown]
  - Inappropriate schedule of product administration [Unknown]
  - Hand fracture [Unknown]
  - Scab [Unknown]
